FAERS Safety Report 9536252 (Version 3)
Quarter: 2014Q2

REPORT INFORMATION
  Report Type: Spontaneous
  Country: US (occurrence: US)
  Receive Date: 20130919
  Receipt Date: 20140423
  Transmission Date: 20141212
  Serious: Yes (Death, Hospitalization)
  Sender: FDA-Public Use
  Company Number: US-ACCORD-019468

PATIENT
  Age: 40 Year
  Sex: Male

DRUGS (3)
  1. TOPIRAMATE [Suspect]
     Indication: CONVULSION
  2. VALPROIC ACID [Concomitant]
     Indication: CONVULSION
  3. METFORMIN/ROSIGLITAZONE [Concomitant]
     Indication: DIABETES MELLITUS

REACTIONS (4)
  - Metabolic acidosis [Unknown]
  - Renal failure acute [Unknown]
  - Rhabdomyolysis [Unknown]
  - Heat stroke [Fatal]
